FAERS Safety Report 25659743 (Version 1)
Quarter: 2025Q3

REPORT INFORMATION
  Report Type: Spontaneous
  Country: RU (occurrence: RU)
  Receive Date: 20250808
  Receipt Date: 20250808
  Transmission Date: 20251021
  Serious: Yes (Death)
  Sender: ALEXION PHARMACEUTICALS
  Company Number: RU-AstraZeneca-CH-00926077A

PATIENT
  Age: 76 Year
  Sex: Female

DRUGS (1)
  1. IMJUDO [Suspect]
     Active Substance: TREMELIMUMAB\TREMELIMUMAB-ACTL
     Indication: Hepatocellular carcinoma
     Route: 065

REACTIONS (1)
  - Jaundice cholestatic [Fatal]

NARRATIVE: CASE EVENT DATE: 20250701
